FAERS Safety Report 22024764 (Version 1)
Quarter: 2023Q1

REPORT INFORMATION
  Report Type: Spontaneous
  Country: US (occurrence: None)
  Receive Date: 20230223
  Receipt Date: 20230223
  Transmission Date: 20230417
  Serious: No
  Sender: FDA-Public Use
  Company Number: US-ROCHE-3048666

PATIENT
  Age: 79 Year
  Sex: Female

DRUGS (1)
  1. XOLAIR [Suspect]
     Active Substance: OMALIZUMAB
     Indication: Product used for unknown indication
     Route: 065

REACTIONS (8)
  - Heart rate increased [Unknown]
  - Erythema [Unknown]
  - Alopecia [Unknown]
  - Nausea [Unknown]
  - Dizziness [Unknown]
  - Abdominal distension [Unknown]
  - Weight increased [Unknown]
  - Hypophagia [Unknown]
